FAERS Safety Report 4573060-5 (Version None)
Quarter: 2005Q1

REPORT INFORMATION
  Report Type: 
  Country: None (occurrence: None)
  Receive Date: 20050204
  Receipt Date: 20050126
  Transmission Date: 20050727
  Serious: Yes (Disabling, Other)
  Sender: FDA-Public Use
  Company Number: DEU-2004-0000858

PATIENT
  Age: 45 Year
  Sex: Female
  Weight: 68 kg

DRUGS (4)
  1. OXYCODONE HCL [Suspect]
     Indication: FIBROMYALGIA
     Dosage: SEE IMAGE
     Route: 048
     Dates: start: 19980401, end: 20020101
  2. OXYCODONE HCL [Suspect]
     Indication: FIBROMYALGIA
     Dosage: SEE IMAGE
     Route: 048
     Dates: start: 20030101
  3. ZYRTEC [Concomitant]
  4. DICLOFENAC SODIUM [Concomitant]

REACTIONS (3)
  - GINGIVAL RECESSION [None]
  - TOOTH DISORDER [None]
  - TOOTH LOSS [None]
